FAERS Safety Report 22770412 (Version 8)
Quarter: 2023Q4

REPORT INFORMATION
  Report Type: Spontaneous
  Country: US (occurrence: US)
  Receive Date: 20230801
  Receipt Date: 20231114
  Transmission Date: 20240110
  Serious: Yes (Other)
  Sender: FDA-Public Use
  Company Number: US-SA-2023SA170865

PATIENT
  Age: 37 Year
  Sex: Female

DRUGS (1)
  1. GOLD BOND MEDICATED ORIGINAL STRENGTH BODY [Suspect]
     Active Substance: MENTHOL
     Dosage: DOSE DESCRIPTION : UNK
     Route: 065

REACTIONS (1)
  - Sarcomatoid mesothelioma [Unknown]
